FAERS Safety Report 10656035 (Version 1)
Quarter: 2014Q4

REPORT INFORMATION
  Report Type: Spontaneous
  Country: US (occurrence: US)
  Receive Date: 20141216
  Receipt Date: 20141216
  Transmission Date: 20150529
  Serious: Yes (Hospitalization)
  Sender: FDA-Public Use
  Company Number: US-CELGENEUS-163-20785-13124907

PATIENT
  Sex: Female

DRUGS (3)
  1. THALOMID [Suspect]
     Active Substance: THALIDOMIDE
     Route: 048
     Dates: start: 201311
  2. THALOMID [Suspect]
     Active Substance: THALIDOMIDE
     Indication: CROHN^S DISEASE
     Route: 048
     Dates: start: 201307, end: 2013
  3. THALOMID [Suspect]
     Active Substance: THALIDOMIDE
     Dosage: 100 - 150MG
     Route: 048
     Dates: start: 201308, end: 2013

REACTIONS (1)
  - Abdominal pain [Unknown]

NARRATIVE: CASE EVENT DATE: 2013
